FAERS Safety Report 18853610 (Version 1)
Quarter: 2021Q1

REPORT INFORMATION
  Report Type: Spontaneous
  Country: HU (occurrence: HU)
  Receive Date: 20210205
  Receipt Date: 20210205
  Transmission Date: 20210420
  Serious: Yes (Hospitalization, Other)
  Sender: FDA-Public Use
  Company Number: HU-PFIZER INC-2021083599

PATIENT
  Age: 44 Year
  Sex: Female

DRUGS (2)
  1. DEPO?PROVERA [Suspect]
     Active Substance: MEDROXYPROGESTERONE ACETATE
     Indication: MENSTRUAL DISORDER
     Dosage: 150 MG, UNK
     Route: 030
     Dates: start: 20201106, end: 20201106
  2. ESMYA [Concomitant]
     Active Substance: ULIPRISTAL ACETATE
     Dosage: 5 MG, UNK
     Route: 048

REACTIONS (2)
  - Uterine haemorrhage [Not Recovered/Not Resolved]
  - Endometrial thickening [Not Recovered/Not Resolved]

NARRATIVE: CASE EVENT DATE: 20201124
